FAERS Safety Report 21041922 (Version 3)
Quarter: 2022Q3

REPORT INFORMATION
  Report Type: Spontaneous
  Country: US (occurrence: US)
  Receive Date: 20220705
  Receipt Date: 20220728
  Transmission Date: 20221026
  Serious: No
  Sender: FDA-Public Use
  Company Number: US-ViiV Healthcare Limited-81733

PATIENT
  Sex: Female

DRUGS (2)
  1. RILPIVIRINE [Suspect]
     Active Substance: RILPIVIRINE
     Indication: Product used for unknown indication
     Dosage: UNK UNK, Z, ONCE EVERY TWO MONTH
     Route: 065
  2. CABOTEGRAVIR [Suspect]
     Active Substance: CABOTEGRAVIR
     Indication: Product used for unknown indication
     Dosage: UNK UNK, Z, ONCE EVERY TWO MONTH
     Route: 065

REACTIONS (5)
  - Injection site nodule [Recovering/Resolving]
  - Condition aggravated [Unknown]
  - Injection site warmth [Unknown]
  - Sensitive skin [Unknown]
  - Abscess [Unknown]
